FAERS Safety Report 23020334 (Version 1)
Quarter: 2023Q4

REPORT INFORMATION
  Report Type: Spontaneous
  Country: CN (occurrence: CN)
  Receive Date: 20231003
  Receipt Date: 20231003
  Transmission Date: 20240109
  Serious: Yes (Other)
  Sender: FDA-Public Use
  Company Number: CN-JNJFOC-20230958987

PATIENT
  Age: 13 Day
  Sex: Male
  Weight: 1 kg

DRUGS (1)
  1. MOTRIN INFANTS [Suspect]
     Active Substance: IBUPROFEN
     Indication: Patent ductus arteriosus repair
     Route: 048
     Dates: start: 20230829, end: 20230829

REACTIONS (4)
  - Abdominal distension [Recovering/Resolving]
  - Discomfort [Recovering/Resolving]
  - Off label use [Unknown]
  - Upper gastrointestinal haemorrhage [Recovering/Resolving]

NARRATIVE: CASE EVENT DATE: 20230829
